FAERS Safety Report 6099740-0 (Version None)
Quarter: 2009Q1

REPORT INFORMATION
  Report Type: 
  Country: None (occurrence: None)
  Receive Date: 20090303
  Receipt Date: 20090223
  Transmission Date: 20090719
  Serious: Yes (Hospitalization, Other)
  Sender: FDA-Public Use
  Company Number: US-AMGEN-QUU335342

PATIENT
  Sex: Female

DRUGS (2)
  1. ENBREL [Suspect]
     Indication: PSORIATIC ARTHROPATHY
     Route: 058
     Dates: start: 20050310
  2. ENBREL [Suspect]
     Indication: PSORIASIS

REACTIONS (16)
  - ABDOMINAL PAIN [None]
  - ARTHRALGIA [None]
  - BLOOD GLUCOSE INCREASED [None]
  - COLONIC POLYP [None]
  - COUGH [None]
  - DRY SKIN [None]
  - EYE HAEMORRHAGE [None]
  - JOINT SWELLING [None]
  - OEDEMA PERIPHERAL [None]
  - PAPILLOEDEMA [None]
  - PRURITUS [None]
  - PSORIATIC ARTHROPATHY [None]
  - RETINAL INJURY [None]
  - SKIN DISCOLOURATION [None]
  - VIRAL INFECTION [None]
  - VISUAL ACUITY REDUCED [None]
